FAERS Safety Report 12472764 (Version 1)
Quarter: 2016Q2

REPORT INFORMATION
  Report Type: Spontaneous
  Country: US (occurrence: US)
  Receive Date: 20160616
  Receipt Date: 20160616
  Transmission Date: 20160815
  Serious: Yes (Hospitalization)
  Sender: FDA-Public Use
  Company Number: US-IPCA LABORATORIES LIMITED-IPC201606-000504

PATIENT
  Age: 47 Year
  Sex: Female

DRUGS (1)
  1. METFORMIN HYDROCHLORIDE. [Suspect]
     Active Substance: METFORMIN HYDROCHLORIDE
     Indication: TYPE 2 DIABETES MELLITUS

REACTIONS (7)
  - Hypocalcaemia [Recovered/Resolved]
  - Paraesthesia [Recovered/Resolved]
  - Hypoaesthesia oral [Recovered/Resolved]
  - Extra dose administered [Unknown]
  - Hypokalaemia [Recovered/Resolved]
  - Hypomagnesaemia [Recovered/Resolved]
  - Diarrhoea [Recovered/Resolved]
